FAERS Safety Report 23698421 (Version 2)
Quarter: 2024Q2

REPORT INFORMATION
  Report Type: Spontaneous
  Country: US (occurrence: US)
  Receive Date: 20240402
  Receipt Date: 20240419
  Transmission Date: 20240716
  Serious: No
  Sender: FDA-Public Use
  Company Number: US-PFIZER INC-PV202400011807

PATIENT
  Age: 74 Year
  Sex: Male
  Weight: 74.83 kg

DRUGS (1)
  1. CIBINQO [Suspect]
     Active Substance: ABROCITINIB
     Indication: Eczema
     Dosage: 100MG ONCE A DAY, BY MOUTH
     Route: 048
     Dates: start: 20240102

REACTIONS (4)
  - Intentional dose omission [Unknown]
  - Oral herpes [Not Recovered/Not Resolved]
  - Lip disorder [Not Recovered/Not Resolved]
  - Cheilitis [Not Recovered/Not Resolved]

NARRATIVE: CASE EVENT DATE: 20240320
